FAERS Safety Report 6632251-X (Version None)
Quarter: 2010Q1

REPORT INFORMATION
  Report Type: 
  Country: None (occurrence: None)
  Receive Date: 20100312
  Receipt Date: 20100225
  Transmission Date: 20100710
  Serious: Yes (Hospitalization)
  Sender: FDA-Public Use
  Company Number: CH-B.I. PHARMACEUTICALS,INC./RIDGEFIELD-2010-SI-00008SI

PATIENT
  Age: 90 Year
  Sex: Female

DRUGS (10)
  1. SIFROL [Suspect]
     Indication: RESTLESS LEGS SYNDROME
     Dosage: 0.125 MG
     Route: 048
     Dates: start: 20091202, end: 20091207
  2. FLOXAPEN [Suspect]
     Indication: STAPHYLOCOCCAL BACTERAEMIA
     Dosage: 8 G
     Route: 042
     Dates: start: 20091130, end: 20091207
  3. FLOXAPEN [Suspect]
     Dosage: 2000 MG
     Route: 048
     Dates: start: 20091204, end: 20091207
  4. MYDOCALM [Suspect]
     Indication: MUSCLE SPASMS
     Dosage: 150 MG
     Route: 048
     Dates: start: 20091126, end: 20091206
  5. DAFALGAN [Suspect]
     Indication: OSTEOARTHRITIS
     Dosage: 3 G
     Route: 048
     Dates: start: 20091126, end: 20091208
  6. DAFALGAN [Suspect]
     Dosage: 1000 MG
     Route: 048
     Dates: start: 20091208
  7. ASPIRIN [Concomitant]
     Dosage: 100 MG
     Route: 048
  8. APROVEL [Concomitant]
     Dosage: 150 MG
     Route: 048
  9. AMLODIPINE [Concomitant]
     Dosage: 5 MG
     Route: 048
  10. CORDARONE [Concomitant]
     Dosage: 200 MG
     Route: 048

REACTIONS (4)
  - HEPATIC ENZYME INCREASED [None]
  - NAUSEA [None]
  - RENAL FAILURE ACUTE [None]
  - VOMITING [None]
